FAERS Safety Report 23560383 (Version 1)
Quarter: 2024Q1

REPORT INFORMATION
  Report Type: Spontaneous
  Country: US (occurrence: US)
  Receive Date: 20240223
  Receipt Date: 20240223
  Transmission Date: 20240409
  Serious: Yes (Death)
  Sender: FDA-Public Use
  Company Number: US-PFIZER INC-202300035980

PATIENT
  Age: 83 Year
  Sex: Male
  Weight: 85.28 kg

DRUGS (1)
  1. VYNDAMAX [Suspect]
     Active Substance: TAFAMIDIS
     Indication: Amyloidosis
     Dosage: 61 MG, 1X/DAY (1 CAPSULE BY MOUTH ONCE A DAY)
     Route: 048
     Dates: start: 202102, end: 20230120

REACTIONS (1)
  - Death [Fatal]
